FAERS Safety Report 8511559-7 (Version None)
Quarter: 2012Q3

REPORT INFORMATION
  Report Type: 
  Country: None (occurrence: None)
  Receive Date: 20120716
  Receipt Date: 20120709
  Transmission Date: 20120928
  Serious: Yes (Other)
  Sender: FDA-Public Use
  Company Number: PHHY2012MX060069

PATIENT
  Sex: Female

DRUGS (2)
  1. TELMISARTAN [Concomitant]
     Dosage: 1 DF, PER DAY
     Dates: start: 20120601
  2. EXELON [Suspect]
     Indication: DEMENTIA ALZHEIMER'S TYPE
     Dosage: 4.6 MG PER DAY (9 MG / 5CM2)
     Route: 062

REACTIONS (1)
  - HEPATITIS [None]
